FAERS Safety Report 16698781 (Version 1)
Quarter: 2019Q3

REPORT INFORMATION
  Report Type: Spontaneous
  Country: KR (occurrence: KR)
  Receive Date: 20190813
  Receipt Date: 20190813
  Transmission Date: 20191004
  Serious: Yes (Other)
  Sender: FDA-Public Use
  Company Number: KR-PTC THERAPEUTICS, INC.-KR-2019PTC001216

PATIENT

DRUGS (1)
  1. DEFLAZACORT [Suspect]
     Active Substance: DEFLAZACORT
     Indication: IMMUNOSUPPRESSION
     Dosage: UNK

REACTIONS (2)
  - Off label use [Unknown]
  - Abortion spontaneous [Unknown]
